FAERS Safety Report 13291239 (Version 1)
Quarter: 2017Q1

REPORT INFORMATION
  Report Type: Spontaneous
  Country: US (occurrence: US)
  Receive Date: 20170302
  Receipt Date: 20170302
  Transmission Date: 20170428
  Serious: No
  Sender: FDA-Public Use
  Company Number: US-PERRIGO-16US017338

PATIENT
  Age: 83 Year
  Sex: Female
  Weight: 80.73 kg

DRUGS (2)
  1. LOPERAMIDE HYDROCHLORIDE. [Suspect]
     Active Substance: LOPERAMIDE HYDROCHLORIDE
     Dosage: 4 MG, SINGLE
     Route: 048
     Dates: start: 20160616, end: 20160616
  2. LOPERAMIDE HYDROCHLORIDE. [Suspect]
     Active Substance: LOPERAMIDE HYDROCHLORIDE
     Indication: DIARRHOEA
     Dosage: 4 MG, AFTER FIRST LOOSE STOOL, 2 MG, AFTER UP TO 2 SUBSEQUENT LOOSE STOOLS, PRN
     Route: 048
     Dates: start: 20160526, end: 20160526

REACTIONS (1)
  - Drug ineffective [Unknown]

NARRATIVE: CASE EVENT DATE: 20160526
